FAERS Safety Report 13469523 (Version 4)
Quarter: 2017Q4

REPORT INFORMATION
  Report Type: Report from Study
  Country: US (occurrence: US)
  Receive Date: 20170421
  Receipt Date: 20171012
  Transmission Date: 20180320
  Serious: No
  Sender: FDA-Public Use
  Company Number: US-AMGEN-USASL2017058130

PATIENT
  Age: 55 Year
  Sex: Female

DRUGS (1)
  1. ENBREL [Suspect]
     Active Substance: ETANERCEPT
     Indication: RHEUMATOID ARTHRITIS
     Dosage: 50 MG, QWK
     Route: 065

REACTIONS (16)
  - Therapy non-responder [Unknown]
  - Walking aid user [Not Recovered/Not Resolved]
  - Stress [Unknown]
  - Finger deformity [Unknown]
  - Injection site erythema [Recovered/Resolved]
  - Injection site pruritus [Recovered/Resolved]
  - Joint stiffness [Not Recovered/Not Resolved]
  - Cough [Recovered/Resolved]
  - Inflammation [Unknown]
  - Arthralgia [Recovering/Resolving]
  - Musculoskeletal stiffness [Not Recovered/Not Resolved]
  - Cataract [Unknown]
  - Pain in extremity [Not Recovered/Not Resolved]
  - Fatigue [Unknown]
  - Musculoskeletal pain [Not Recovered/Not Resolved]
  - Joint swelling [Not Recovered/Not Resolved]
